FAERS Safety Report 5292020-2 (Version None)
Quarter: 2007Q2

REPORT INFORMATION
  Report Type: 
  Country: None (occurrence: None)
  Receive Date: 20070410
  Receipt Date: 20070330
  Transmission Date: 20071010
  Serious: Yes (Other)
  Sender: FDA-Public Use
  Company Number: DE-JNJFOC-20070301680

PATIENT
  Sex: Female
  Weight: 12.2 kg

DRUGS (2)
  1. TOPAMAX [Suspect]
     Indication: EPILEPSY
     Route: 048
  2. LAMICTAL [Concomitant]
     Indication: EPILEPSY
     Route: 048

REACTIONS (1)
  - CATARACT [None]
